FAERS Safety Report 5931841-7 (Version None)
Quarter: 2008Q4

REPORT INFORMATION
  Report Type: 
  Country: None (occurrence: None)
  Receive Date: 20081027
  Receipt Date: 20081015
  Transmission Date: 20090506
  Serious: Yes (Death)
  Sender: FDA-Public Use
  Company Number: JP-PFIZER INC-2008072558

PATIENT
  Age: 84 Year
  Sex: Male

DRUGS (6)
  1. CELECOX [Suspect]
     Indication: OSTEOARTHRITIS
     Route: 048
     Dates: start: 20080304, end: 20080401
  2. MYONAL [Concomitant]
     Indication: SCIATICA
     Dosage: DAILY DOSE:150MG
     Route: 048
     Dates: start: 20071116, end: 20080401
  3. CYANOCOBALAMIN [Concomitant]
     Indication: SCIATICA
     Dosage: DAILY DOSE:150MCG
     Route: 048
     Dates: start: 20071106, end: 20080401
  4. ALENDRONATE SODIUM [Concomitant]
     Indication: OSTEOPOROSIS
     Dosage: DAILY DOSE:5MG
     Route: 048
     Dates: start: 20071113, end: 20080318
  5. ELCITONIN [Concomitant]
     Indication: OSTEOPOROSIS
     Dosage: DAILY DOSE:20I.U.
     Dates: start: 20071113
  6. ARTZ [Concomitant]
     Indication: OSTEOARTHRITIS
     Dosage: DAILY DOSE:25MG
     Dates: start: 20071214, end: 20080401

REACTIONS (1)
  - ACCIDENTAL DEATH [None]
